FAERS Safety Report 8448016-2 (Version None)
Quarter: 2012Q2

REPORT INFORMATION
  Report Type: 
  Country: None (occurrence: None)
  Receive Date: 20120619
  Receipt Date: 20120613
  Transmission Date: 20120825
  Serious: Yes (Other)
  Sender: FDA-Public Use
  Company Number: US-BAYER-2012-040346

PATIENT
  Age: 45 Year
  Sex: Female

DRUGS (6)
  1. NAPROXEN (ALEVE) [Concomitant]
  2. BETASERON [Suspect]
     Dosage: 8 MIU, QOD
     Route: 058
  3. CYCLOBENZAPRINE [Concomitant]
     Indication: MUSCLE SPASMS
     Dosage: 15 MG, HS
  4. TRIAMTERENE AND HYDROCHLOROTHIAZIDE [Concomitant]
     Indication: OEDEMA PERIPHERAL
     Dosage: 37.5/25
  5. BETASERON [Suspect]
     Indication: MULTIPLE SCLEROSIS
     Dosage: 8 MIU, QOD
     Route: 058
     Dates: start: 20110315
  6. BACLOFEN [Concomitant]
     Indication: MUSCLE SPASMS
     Dosage: 10 MG, BID

REACTIONS (10)
  - HEPATIC ENZYME INCREASED [None]
  - THYROID FUNCTION TEST ABNORMAL [None]
  - THYROID NEOPLASM [None]
  - DYSPHAGIA [None]
  - LYMPHADENOPATHY [None]
  - CHOKING SENSATION [None]
  - DYSPNOEA EXERTIONAL [None]
  - EXFOLIATIVE RASH [None]
  - WEIGHT INCREASED [None]
  - SKIN DISCOLOURATION [None]
